FAERS Safety Report 21074849 (Version 2)
Quarter: 2022Q3

REPORT INFORMATION
  Report Type: Spontaneous
  Country: DE (occurrence: DE)
  Receive Date: 20220713
  Receipt Date: 20220726
  Transmission Date: 20221027
  Serious: Yes (Other)
  Sender: FDA-Public Use
  Company Number: DE-NOVARTISPH-NVSC2022DE155943

PATIENT
  Age: 80 Year
  Sex: Male
  Weight: 71 kg

DRUGS (3)
  1. DEXAMETHASONE [Suspect]
     Active Substance: DEXAMETHASONE
     Indication: Plasma cell myeloma
     Dosage: 20 MG, (DATE OF LAST APPLICATION PRIOR EVENT WAS ON 08 DEC 2021)
     Route: 065
     Dates: start: 20211005
  2. REVLIMID [Suspect]
     Active Substance: LENALIDOMIDE
     Indication: Plasma cell myeloma
     Dosage: 25 MG, (DATE OF LAST APPLICATION PRIOR EVENT WAS ON 14 DEC 2021)
     Route: 048
     Dates: start: 20211005, end: 20211214
  3. DARATUMUMAB [Suspect]
     Active Substance: DARATUMUMAB
     Indication: Plasma cell myeloma
     Dosage: 1100 MG, (DATE OF LAST APPLICATION PRIOR EVENT WAS ON 07 DEC 2021)
     Route: 065
     Dates: start: 20211005

REACTIONS (1)
  - Leukopenia [Recovered/Resolved]

NARRATIVE: CASE EVENT DATE: 20211214
